FAERS Safety Report 4537135-9 (Version None)
Quarter: 2004Q4

REPORT INFORMATION
  Report Type: 
  Country: None (occurrence: None)
  Receive Date: 20041221
  Receipt Date: 20041118
  Transmission Date: 20050328
  Serious: Yes (Death)
  Sender: FDA-Public Use
  Company Number: MK200412-0094-1

PATIENT
  Age: 2 Year
  Sex: Male

DRUGS (1)
  1. OXYCODONE HCL [Suspect]
     Dates: end: 20030101

REACTIONS (5)
  - BRAIN DEATH [None]
  - COMA [None]
  - OVERDOSE [None]
  - SOMNOLENCE [None]
  - THERMAL BURN [None]
